FAERS Safety Report 8936432 (Version 1)
Quarter: 2012Q4

REPORT INFORMATION
  Report Type: 
  Country: DE (occurrence: DE)
  Receive Date: 20121130
  Receipt Date: 20121130
  Transmission Date: 20130627
  Serious: Yes (Other)
  Sender: FDA-Public Use
  Company Number: DE-ELI_LILLY_AND_COMPANY-DE201211006141

PATIENT
  Age: 62 Year
  Sex: Female

DRUGS (10)
  1. CYMBALTA [Suspect]
     Indication: DEMENTIA ALZHEIMER^S TYPE
     Dosage: 15 mg, unknown
     Route: 048
     Dates: start: 20120529, end: 20120529
  2. CYMBALTA [Suspect]
     Dosage: 20 mg, unknown
     Route: 048
     Dates: start: 20120530, end: 20120603
  3. CYMBALTA [Suspect]
     Dosage: 30 mg, unknown
     Route: 048
     Dates: start: 20120604, end: 20120614
  4. CYMBALTA [Suspect]
     Dosage: 20 mg, unknown
     Route: 048
     Dates: start: 20120615, end: 20120617
  5. ABILIFY [Concomitant]
     Dosage: 15 mg, unknown
     Dates: end: 20120618
  6. ABILIFY [Concomitant]
     Dosage: 10 mg, unknown
     Route: 048
     Dates: start: 20120619
  7. DIPIPERON [Concomitant]
     Dosage: 40 mg, unknown
     Route: 048
  8. FOLSAN [Concomitant]
     Dosage: 5 mg, unknown
     Route: 048
     Dates: start: 20120519
  9. CITALOPRAM [Concomitant]
  10. METAMIZOLE [Concomitant]

REACTIONS (3)
  - Gamma-glutamyltransferase increased [Recovered/Resolved]
  - Off label use [Unknown]
  - Alanine aminotransferase increased [Unknown]
